FAERS Safety Report 4622808-X (Version None)
Quarter: 2005Q1

REPORT INFORMATION
  Report Type: 
  Country: None (occurrence: None)
  Receive Date: 20050328
  Receipt Date: 20050328
  Transmission Date: 20050727
  Serious: Yes (Hospitalization)
  Sender: FDA-Public Use
  Company Number: None

PATIENT
  Age: 55 Year
  Sex: Male

DRUGS (16)
  1. WARFARIN [Suspect]
     Indication: PULMONARY EMBOLISM
     Dosage: 2MG PO QHS
     Route: 048
     Dates: start: 20040720, end: 20050325
  2. DIFLUCAN [Suspect]
     Indication: ORAL CANDIDIASIS
     Dosage: 400MG PO QD
     Route: 048
     Dates: start: 20041221, end: 20041230
  3. ASPIRIN [Concomitant]
  4. CLINDAMYCIN [Concomitant]
  5. DEXAMETHASONE [Concomitant]
  6. DIGOXIN [Concomitant]
  7. COLACE [Concomitant]
  8. LASIX [Concomitant]
  9. GLYBURIDE [Concomitant]
  10. REGLAN [Concomitant]
  11. METOPROLOL TARTRATE [Concomitant]
  12. NORTRIPTYLINE HCL [Concomitant]
  13. OXYCODONE HCL [Concomitant]
  14. ZOLOFT [Concomitant]
  15. ZOCOR [Concomitant]
  16. TEMAZEPAM [Concomitant]

REACTIONS (4)
  - CYANOSIS [None]
  - HEPATIC CONGESTION [None]
  - HEPATIC FAILURE [None]
  - INTERNATIONAL NORMALISED RATIO FLUCTUATION [None]
